FAERS Safety Report 7297765-0 (Version None)
Quarter: 2011Q1

REPORT INFORMATION
  Report Type: 
  Country: None (occurrence: None)
  Receive Date: 20110214
  Receipt Date: 20110214
  Transmission Date: 20110831
  Serious: Yes (Other)
  Sender: FDA-Public Use
  Company Number: None

PATIENT
  Age: 51 Year
  Sex: Female
  Weight: 95.2554 kg

DRUGS (1)
  1. CHANTIX [Suspect]
     Indication: SMOKING CESSATION THERAPY
     Dosage: 1 MG BID PO
     Route: 048
     Dates: start: 20110118, end: 20110211

REACTIONS (8)
  - ASTHENIA [None]
  - ABNORMAL DREAMS [None]
  - FLATULENCE [None]
  - NAUSEA [None]
  - DEPRESSION [None]
  - THINKING ABNORMAL [None]
  - CONSTIPATION [None]
  - MORBID THOUGHTS [None]
